FAERS Safety Report 16491664 (Version 2)
Quarter: 2019Q3

REPORT INFORMATION
  Report Type: Spontaneous
  Country: NL (occurrence: NL)
  Receive Date: 20190628
  Receipt Date: 20190703
  Transmission Date: 20191004
  Serious: Yes (Disabling)
  Sender: FDA-Public Use
  Company Number: NL-AMREGENT-20191360

PATIENT
  Age: 38 Year
  Sex: Female

DRUGS (10)
  1. PARACETAMOL [Concomitant]
     Active Substance: ACETAMINOPHEN
     Dosage: 2000 MG (1000 MG, 2 IN 1 D)
     Route: 065
  2. SUCRALFATE. [Concomitant]
     Active Substance: SUCRALFATE
     Dosage: 4 GM (1 GM, AS REQUIRED)
     Route: 065
  3. CODEINE [Concomitant]
     Active Substance: CODEINE
     Dosage: 40 MG (20 MG, AS REQUIRED)
     Route: 065
  4. ETHINYLESTRADIOL/LEVONORGESTREL [Concomitant]
     Active Substance: ETHINYL ESTRADIOL\LEVONORGESTREL
     Dosage: 1 DOSAGE FORM, 1 IN 1D
     Route: 065
  5. METAMUCIL [Concomitant]
     Active Substance: PLANTAGO SEED
     Dosage: 1 DOSAGE FORM (1 DF, 1 IN 1 D)
     Route: 065
  6. CALCIUM CARB/COLECALC [Concomitant]
     Dosage: (1000 MG CA) (1 DF, 1 IN 1 D)
     Route: 065
  7. FERINJECT [Suspect]
     Active Substance: FERRIC CARBOXYMALTOSE
     Dosage: 1000 UNSPECIFIED UNIT (1 DF)
     Route: 042
     Dates: start: 20111211, end: 20190601
  8. OMEPRAZOLE. [Concomitant]
     Active Substance: OMEPRAZOLE
     Dosage: 40 MG (40 MG,1 IN 1 D)
     Route: 065
  9. URSOCHOL [Concomitant]
     Active Substance: URSODIOL
     Dosage: 450 MG 1-2 TIMES DAILY
  10. VITAMIN D [Concomitant]
     Active Substance: VITAMIN D NOS
     Dosage: 50 MCG (50 MCG,1 IN 1 D)
     Route: 065

REACTIONS (2)
  - Osteomalacia [Recovered/Resolved with Sequelae]
  - Blood phosphorus abnormal [Recovered/Resolved with Sequelae]

NARRATIVE: CASE EVENT DATE: 20151022
